FAERS Safety Report 13121318 (Version 1)
Quarter: 2017Q1

REPORT INFORMATION
  Report Type: Spontaneous
  Country: None (occurrence: US)
  Receive Date: 20170114
  Receipt Date: 20170114
  Transmission Date: 20170428
  Serious: No
  Sender: FDA-Public Use
  Company Number: None

PATIENT
  Age: 55 Year
  Sex: Male
  Weight: 75.82 kg

DRUGS (3)
  1. FLUTICASONE SPRAY [Suspect]
     Active Substance: FLUTICASONE
  2. FLUNISOLIDE SPRAY [Suspect]
     Active Substance: FLUNISOLIDE
  3. TRIAMCINOLONE SPRAY [Suspect]
     Active Substance: TRIAMCINOLONE

REACTIONS (1)
  - Drug ineffective [None]
